FAERS Safety Report 9354032 (Version 2)
Quarter: 2013Q4

REPORT INFORMATION
  Report Type: Spontaneous
  Country: US (occurrence: US)
  Receive Date: 20130618
  Receipt Date: 20131007
  Transmission Date: 20140711
  Serious: Yes (Hospitalization)
  Sender: FDA-Public Use
  Company Number: US-INCYTE CORPORATION-2013IN001247

PATIENT
  Age: 53 Year
  Sex: Female

DRUGS (3)
  1. JAKAFI [Suspect]
     Indication: MYELOFIBROSIS
     Dosage: 20 MG, BID
     Route: 048
     Dates: start: 20111214
  2. JAKAFI [Suspect]
     Dosage: 10 MG, BID
     Route: 048
  3. HYDROXYUREA [Concomitant]

REACTIONS (2)
  - Hospitalisation [Recovered/Resolved]
  - Surgery [Unknown]
